FAERS Safety Report 9373745 (Version 2)
Quarter: 2013Q3

REPORT INFORMATION
  Report Type: Report from Study
  Country: US (occurrence: US)
  Receive Date: 20130628
  Receipt Date: 20130726
  Transmission Date: 20140515
  Serious: Yes (Other)
  Sender: FDA-Public Use
  Company Number: US-BAXTER-2013BAX014177

PATIENT
  Age: 56 Year
  Sex: Female

DRUGS (3)
  1. GAMMAGARD S/D [Suspect]
     Indication: PRODUCT USED FOR UNKNOWN INDICATION
     Route: 042
  2. GAMMAGARD S/D [Suspect]
     Route: 042
     Dates: start: 20130515
  3. GAMMAGARD S/D [Suspect]
     Route: 042
     Dates: start: 20130606

REACTIONS (5)
  - Bedridden [Recovered/Resolved]
  - Fatigue [Not Recovered/Not Resolved]
  - Headache [Not Recovered/Not Resolved]
  - Asthenia [Not Recovered/Not Resolved]
  - Malaise [Recovered/Resolved]
